FAERS Safety Report 5760297-2 (Version None)
Quarter: 2008Q2

REPORT INFORMATION
  Report Type: 
  Country: None (occurrence: None)
  Receive Date: 20080605
  Receipt Date: 20080527
  Transmission Date: 20081010
  Serious: Yes (Other)
  Sender: FDA-Public Use
  Company Number: BR-PFIZER INC-2008046290

PATIENT
  Sex: Female
  Weight: 55 kg

DRUGS (5)
  1. CHANTIX [Suspect]
     Indication: TOBACCO ABUSE
     Route: 048
  2. SPIRIVA [Concomitant]
     Route: 065
  3. SERETIDE [Concomitant]
     Route: 065
  4. COZAAR [Concomitant]
     Route: 065
  5. AMLODIPINE [Concomitant]
     Route: 065

REACTIONS (6)
  - FALL [None]
  - INCONTINENCE [None]
  - LIMB OPERATION [None]
  - MALAISE [None]
  - NAUSEA [None]
  - VOMITING [None]
